FAERS Safety Report 9308466 (Version 4)
Quarter: 2013Q2

REPORT INFORMATION
  Report Type: Report from Study
  Country: CN (occurrence: CN)
  Receive Date: 20130524
  Receipt Date: 20130612
  Transmission Date: 20140414
  Serious: Yes (Hospitalization)
  Sender: FDA-Public Use
  Company Number: CN-ROCHE-1228509

PATIENT
  Age: 69 Year
  Sex: Male
  Weight: 44 kg

DRUGS (17)
  1. TRASTUZUMAB [Suspect]
     Indication: ADENOCARCINOMA GASTRIC
     Dosage: LOADING DOSE AS PER PROTOCOL.
     Route: 042
     Dates: start: 20130418, end: 20130418
  2. TRASTUZUMAB [Suspect]
     Dosage: MAINTENANCE DOSE AS PER PROTOCOL. THE MOST RECENT DOSE, PRIOR TO THE EVENT, WAS ON 09/MAY/2013.
     Route: 042
  3. CAPECITABINE [Suspect]
     Indication: ADENOCARCINOMA GASTRIC
     Dosage: THE MOST RECENT DOSE, PRIOR TO THE EVENT BECOMING SERIOUS, WAS ON 20/MAY/2013.
     Route: 048
     Dates: start: 20130418
  4. CISPLATIN [Suspect]
     Indication: ADENOCARCINOMA GASTRIC
     Dosage: THE MOST RECENT DOSE, PRIOR TO THE EVENT, WAS ON 09/MAY/2013.
     Route: 042
     Dates: start: 20130418
  5. GLUTATHIONE [Concomitant]
     Indication: HEPATIC FUNCTION ABNORMAL
     Route: 065
     Dates: start: 20130403, end: 20130425
  6. GLUTATHIONE [Concomitant]
     Route: 065
     Dates: start: 20130509, end: 20130509
  7. GLUTATHIONE [Concomitant]
     Route: 065
     Dates: start: 20130521
  8. LANSOPRAZOLE [Concomitant]
     Route: 065
     Dates: start: 20130403, end: 20130425
  9. LANSOPRAZOLE [Concomitant]
     Route: 065
     Dates: start: 20130509, end: 20130509
  10. LANSOPRAZOLE [Concomitant]
     Route: 065
     Dates: start: 20130521
  11. BUFFERIN COLD (CHINA) [Concomitant]
     Indication: PYREXIA
     Route: 065
     Dates: start: 20130509, end: 20130509
  12. DEXAMETHASONE SODIUM PHOSPHATE [Concomitant]
     Indication: HYPERSENSITIVITY
     Route: 065
     Dates: start: 20130509, end: 20130509
  13. PHENERGAN [Concomitant]
     Indication: HYPERSENSITIVITY
     Route: 065
     Dates: start: 20130509, end: 20130509
  14. PALONOSETRON HYDROCHLORIDE [Concomitant]
     Indication: VOMITING
     Route: 065
     Dates: start: 20130509, end: 20130509
  15. FUROSEMIDE [Concomitant]
     Route: 065
     Dates: start: 20130509, end: 20130509
  16. CALCIUM GLUCONATE [Concomitant]
     Indication: HYPOCALCAEMIA
     Route: 065
     Dates: start: 20130523
  17. HUMAN ALBUMIN [Concomitant]
     Indication: HYPOALBUMINAEMIA
     Route: 065
     Dates: start: 20130523

REACTIONS (1)
  - Obstruction gastric [Recovered/Resolved]
